FAERS Safety Report 5722267-X (Version None)
Quarter: 2008Q2

REPORT INFORMATION
  Report Type: 
  Country: None (occurrence: None)
  Receive Date: 20080429
  Receipt Date: 20071009
  Transmission Date: 20081010
  Serious: No
  Sender: FDA-Public Use
  Company Number: US-ASTRAZENECA-2007UW23493

PATIENT
  Age: 49 Year
  Sex: Male
  Weight: 89.4 kg

DRUGS (2)
  1. NEXIUM [Suspect]
     Indication: GASTROOESOPHAGEAL REFLUX DISEASE
     Route: 048
     Dates: start: 20011001, end: 20071004
  2. ATENOLOL [Concomitant]
     Route: 048

REACTIONS (10)
  - ASTHENIA [None]
  - CHOKING [None]
  - CONSTIPATION [None]
  - DIARRHOEA [None]
  - DYSPEPSIA [None]
  - PAIN IN EXTREMITY [None]
  - PARAESTHESIA [None]
  - RETCHING [None]
  - SLEEP DISORDER [None]
  - VITAMIN B12 DEFICIENCY [None]
